FAERS Safety Report 6357762-6 (Version None)
Quarter: 2009Q3

REPORT INFORMATION
  Report Type: 
  Country: None (occurrence: None)
  Receive Date: 20090911
  Receipt Date: 20090902
  Transmission Date: 20100115
  Serious: Yes (Other)
  Sender: FDA-Public Use
  Company Number: 09GB001202

PATIENT
  Sex: Female

DRUGS (2)
  1. PAROXETINE HCL [Suspect]
     Indication: DRUG USE FOR UNKNOWN INDICATION
  2. METHYLTHIONINIUM CHLORIDE (METHYLTHIONINIUM CHLORIDE) [Suspect]
     Dosage: 1 MG/KG

REACTIONS (5)
  - APHASIA [None]
  - DRUG INTERACTION [None]
  - DRUG TOXICITY [None]
  - MYDRIASIS [None]
  - SEROTONIN SYNDROME [None]
